FAERS Safety Report 24564281 (Version 1)
Quarter: 2024Q4

REPORT INFORMATION
  Report Type: Report from Study
  Country: US (occurrence: US)
  Receive Date: 20241030
  Receipt Date: 20241030
  Transmission Date: 20250115
  Serious: Yes (Hospitalization, Other)
  Sender: GILEAD
  Company Number: US-GILEAD-2024-0692480

PATIENT
  Age: 53 Year
  Sex: Male

DRUGS (13)
  1. AZTREONAM LYSINE [Suspect]
     Active Substance: AZTREONAM LYSINE
     Indication: Cystic fibrosis
     Dosage: 75 MG 3 TIMES DAILY FOR 28 DAYS, OFF 28 DAYS
     Route: 065
  2. AZTREONAM LYSINE [Suspect]
     Active Substance: AZTREONAM LYSINE
     Indication: Pseudomonas infection
  3. DUPIXENT [Concomitant]
     Active Substance: DUPILUMAB
  4. CARVEDILOL [Concomitant]
     Active Substance: CARVEDILOL
  5. TRELEGY ELLIPTA [Concomitant]
     Active Substance: FLUTICASONE FUROATE\UMECLIDINIUM BROMIDE\VILANTEROL TRIFENATATE
  6. LATANOPROST [Concomitant]
     Active Substance: LATANOPROST
  7. MESALAMINE [Concomitant]
     Active Substance: MESALAMINE
  8. ROSUVASTATIN [Concomitant]
     Active Substance: ROSUVASTATIN
  9. BRIMONIDINE TARTRATE;TIMOLOL [Concomitant]
  10. MONTELUKAST [Concomitant]
     Active Substance: MONTELUKAST
  11. VALSARTAN [Concomitant]
     Active Substance: VALSARTAN
  12. DILTIAZEM [Concomitant]
     Active Substance: DILTIAZEM
  13. SPIRONOLACTONE [Concomitant]
     Active Substance: SPIRONOLACTONE

REACTIONS (1)
  - Pneumonia [Unknown]
